FAERS Safety Report 6805437-9 (Version None)
Quarter: 2010Q2

REPORT INFORMATION
  Report Type: 
  Country: None (occurrence: None)
  Receive Date: 20100628
  Receipt Date: 20080208
  Transmission Date: 20101027
  Serious: Yes (Other)
  Sender: FDA-Public Use
  Company Number: US-PFIZER INC-2007097079

PATIENT
  Age: 28 Year
  Sex: Female
  Weight: 65.8 kg

DRUGS (2)
  1. GEODON [Suspect]
     Indication: SCHIZOAFFECTIVE DISORDER
     Route: 048
     Dates: start: 20070730, end: 20071016
  2. ZYPREXA [Concomitant]

REACTIONS (4)
  - AGITATION [None]
  - EXTRAPYRAMIDAL DISORDER [None]
  - MANIA [None]
  - TARDIVE DYSKINESIA [None]
